FAERS Safety Report 6335596-6 (Version None)
Quarter: 2009Q3

REPORT INFORMATION
  Report Type: 
  Country: None (occurrence: None)
  Receive Date: 20090826
  Receipt Date: 20090811
  Transmission Date: 20100115
  Serious: Yes (Other)
  Sender: FDA-Public Use
  Company Number: 1-18346899

PATIENT
  Age: 78 Year
  Sex: Female

DRUGS (5)
  1. ULTIVA [Suspect]
     Indication: ANAESTHESIA
     Dosage: 0.05 TO 0.25 MCG/KG/MIN
     Dates: start: 20080705
  2. AMITRIPTYLINE (MANUFACTURER UNKNOWN) [Suspect]
     Indication: DEPRESSION
     Dosage: 75 MG DAILY, ORAL
     Route: 048
  3. PROPOFOL [Suspect]
     Indication: ANAESTHESIA
     Dosage: 40 MG/KG, INTRAVENOUS
     Route: 042
  4. SEVOFLURANE [Suspect]
     Indication: ANAESTHESIA
     Dosage: 1.5%, INHALATION
     Route: 055
     Dates: start: 20090705
  5. VECHRONIUM [Concomitant]

REACTIONS (6)
  - BLOOD PRESSURE SYSTOLIC INCREASED [None]
  - FALL [None]
  - HAEMORRHAGE [None]
  - HEART RATE DECREASED [None]
  - HUMERUS FRACTURE [None]
  - HYPOTENSION [None]
